FAERS Safety Report 9786500 (Version 5)
Quarter: 2014Q4

REPORT INFORMATION
  Report Type: Spontaneous
  Country: US (occurrence: US)
  Receive Date: 20131227
  Receipt Date: 20141009
  Transmission Date: 20150529
  Serious: Yes (Hospitalization, Other)
  Sender: FDA-Public Use
  Company Number: US-009507513-1312USA009118

PATIENT
  Sex: Female
  Weight: 106.58 kg

DRUGS (4)
  1. PLAQUENIL [Concomitant]
     Active Substance: HYDROXYCHLOROQUINE SULFATE
     Indication: SYSTEMIC LUPUS ERYTHEMATOSUS
     Dosage: UNK
     Dates: start: 1992
  2. CALCIUM (UNSPECIFIED) [Concomitant]
     Active Substance: CALCIUM
     Dosage: 1500 MG, QD
     Dates: start: 1995
  3. FOSAMAX [Suspect]
     Active Substance: ALENDRONATE SODIUM
     Indication: OSTEOPOROSIS
     Dosage: 70 MG, QW
     Route: 048
     Dates: start: 2001, end: 200804
  4. ALENDRONATE SODIUM. [Suspect]
     Active Substance: ALENDRONATE SODIUM
     Indication: OSTEOPOROSIS
     Dosage: 70 MG, QW
     Route: 048
     Dates: start: 200804, end: 201205

REACTIONS (21)
  - Femur fracture [Recovered/Resolved]
  - Intramedullary rod insertion [Recovered/Resolved]
  - Foot deformity [Unknown]
  - Breast cancer [Unknown]
  - Back pain [Unknown]
  - Gastrooesophageal reflux disease [Unknown]
  - Fall [Unknown]
  - Infected seroma [Unknown]
  - Carcinoma in situ [Unknown]
  - Oedema [Unknown]
  - Device malfunction [Unknown]
  - Femur fracture [Recovered/Resolved]
  - Impaired healing [Unknown]
  - Pulmonary fibrosis [Unknown]
  - Debridement [Unknown]
  - Polyarthritis [Unknown]
  - Osteoarthritis [Unknown]
  - Intramedullary rod insertion [Recovered/Resolved]
  - Cancer surgery [Unknown]
  - Squamous cell carcinoma of the vulva [Unknown]
  - Patella fracture [Not Recovered/Not Resolved]

NARRATIVE: CASE EVENT DATE: 2004
